FAERS Safety Report 19073494 (Version 1)
Quarter: 2021Q1

REPORT INFORMATION
  Report Type: Spontaneous
  Country: NL (occurrence: NL)
  Receive Date: 20210330
  Receipt Date: 20210330
  Transmission Date: 20210420
  Serious: Yes (Other)
  Sender: FDA-Public Use
  Company Number: NL-BAYER-2021-104834

PATIENT
  Age: 22 Year
  Sex: Female
  Weight: 65 kg

DRUGS (1)
  1. KYLEENA [Suspect]
     Active Substance: LEVONORGESTREL
     Dosage: 17.5 ?G PER DAY CONTINUOUSLY
     Route: 015
     Dates: start: 20170901, end: 20210106

REACTIONS (4)
  - Procedural haemorrhage [None]
  - Ectopic pregnancy with contraceptive device [Recovered/Resolved]
  - Ovarian haemorrhage [None]
  - Drug ineffective [None]

NARRATIVE: CASE EVENT DATE: 20210103
